FAERS Safety Report 6167745-7 (Version None)
Quarter: 2009Q2

REPORT INFORMATION
  Report Type: 
  Country: None (occurrence: None)
  Receive Date: 20090423
  Receipt Date: 20090407
  Transmission Date: 20091009
  Serious: Yes (Hospitalization)
  Sender: FDA-Public Use
  Company Number: B0441120A

PATIENT
  Age: 78 Year
  Sex: Female

DRUGS (1)
  1. VALTREX [Suspect]
     Indication: HERPES ZOSTER
     Dosage: 1000 MG/ THREE TIMES PER DAY / ORAL
     Route: 048
     Dates: start: 20060906, end: 20060910

REACTIONS (6)
  - ALTERED STATE OF CONSCIOUSNESS [None]
  - CEREBRAL ATROPHY [None]
  - DECREASED APPETITE [None]
  - DEHYDRATION [None]
  - DYSPHAGIA [None]
  - RENAL FAILURE ACUTE [None]
